FAERS Safety Report 6621794-0 (Version None)
Quarter: 2010Q1

REPORT INFORMATION
  Report Type: 
  Country: None (occurrence: None)
  Receive Date: 20100309
  Receipt Date: 20100225
  Transmission Date: 20100710
  Serious: Yes (Other)
  Sender: FDA-Public Use
  Company Number: PHHY2010JP09512

PATIENT
  Age: 10 Year
  Sex: Male

DRUGS (4)
  1. CYCLOSPORINE [Suspect]
     Indication: BONE MARROW TRANSPLANT
  2. TACROLIMUS [Concomitant]
     Indication: BONE MARROW TRANSPLANT
  3. METHOTREXATE [Concomitant]
     Indication: BONE MARROW TRANSPLANT
  4. METHYLPREDNISOLONE [Concomitant]

REACTIONS (7)
  - ACUTE GRAFT VERSUS HOST DISEASE IN SKIN [None]
  - CATARACT [None]
  - DRUG INEFFECTIVE [None]
  - HYPERTENSION [None]
  - PANCREATITIS [None]
  - THROMBOCYTOPENIA [None]
  - TOXIC ENCEPHALOPATHY [None]
